FAERS Safety Report 15490070 (Version 1)
Quarter: 2018Q4

REPORT INFORMATION
  Report Type: Spontaneous
  Country: US (occurrence: US)
  Receive Date: 20181011
  Receipt Date: 20181011
  Transmission Date: 20190205
  Serious: Yes (Hospitalization, Other)
  Sender: FDA-Public Use
  Company Number: US-GLAXOSMITHKLINE-US2018182683

PATIENT
  Sex: Male

DRUGS (1)
  1. LAMICTAL XR [Suspect]
     Active Substance: LAMOTRIGINE
     Indication: PRODUCT USED FOR UNKNOWN INDICATION
     Route: 048

REACTIONS (8)
  - Fall [Unknown]
  - Psychotic disorder [Unknown]
  - Seizure [Unknown]
  - Mental disorder [Unknown]
  - Amputation of penis [Unknown]
  - Limb injury [Unknown]
  - Product use issue [Unknown]
  - Hospitalisation [Unknown]

NARRATIVE: CASE EVENT DATE: 201809
